FAERS Safety Report 25234500 (Version 1)
Quarter: 2025Q2

REPORT INFORMATION
  Report Type: Spontaneous
  Country: US (occurrence: US)
  Receive Date: 20250424
  Receipt Date: 20250424
  Transmission Date: 20250716
  Serious: Yes (Hospitalization, Other)
  Sender: BAYER HEALTHCARE PHARMACEUTICALS INC.
  Company Number: US-BAYER-2025A049701

PATIENT
  Age: 21 Year
  Sex: Female

DRUGS (5)
  1. MIRENA [Suspect]
     Active Substance: LEVONORGESTREL
     Indication: Contraception
     Dosage: 20?G/DAY
     Route: 015
     Dates: start: 20250326, end: 20250409
  2. IBUPROFEN [Concomitant]
     Active Substance: IBUPROFEN
     Indication: Abdominal discomfort
  3. TYLENOL [Concomitant]
     Active Substance: ACETAMINOPHEN
  4. ADVIL [Concomitant]
     Active Substance: IBUPROFEN
  5. VALIUM [Concomitant]
     Active Substance: DIAZEPAM
     Indication: Anxiety

REACTIONS (18)
  - Pelvic pain [Recovering/Resolving]
  - Abdominal pain [Recovering/Resolving]
  - Vomiting [Recovered/Resolved]
  - Nausea [Recovering/Resolving]
  - Insomnia [Recovering/Resolving]
  - Chills [Recovering/Resolving]
  - Photosensitivity reaction [Recovering/Resolving]
  - Hyperacusis [Recovering/Resolving]
  - Hyperhidrosis [Recovering/Resolving]
  - Decreased appetite [Recovering/Resolving]
  - Emotional distress [Recovering/Resolving]
  - Near death experience [Recovering/Resolving]
  - Asthenia [Recovering/Resolving]
  - Muscle spasms [Recovering/Resolving]
  - Suicidal ideation [None]
  - Feeding disorder [Recovering/Resolving]
  - Diarrhoea [Recovering/Resolving]
  - Abdominal pain lower [Recovering/Resolving]

NARRATIVE: CASE EVENT DATE: 20250326
